FAERS Safety Report 9232760 (Version 4)
Quarter: 2014Q2

REPORT INFORMATION
  Report Type: Spontaneous
  Country: JP (occurrence: JP)
  Receive Date: 20130416
  Receipt Date: 20140423
  Transmission Date: 20141212
  Serious: Yes (Other)
  Sender: FDA-Public Use
  Company Number: JP-AMGEN-JPNSP2013025445

PATIENT
  Age: 79 Year
  Sex: Male

DRUGS (3)
  1. RANMARK [Suspect]
     Indication: PRODUCT USED FOR UNKNOWN INDICATION
     Dosage: 120 MG, UNK
     Route: 058
     Dates: start: 20120711, end: 20130109
  2. LEUPLIN [Concomitant]
     Dosage: UNKNOWN EVERY
     Route: 065
  3. DECADRON                           /00016001/ [Concomitant]
     Dosage: UNKNOWN     EVERY
     Route: 065

REACTIONS (1)
  - Osteonecrosis of jaw [Recovered/Resolved]
